FAERS Safety Report 11123134 (Version 1)
Quarter: 2015Q2

REPORT INFORMATION
  Report Type: Spontaneous
  Country: US (occurrence: US)
  Receive Date: 20150519
  Receipt Date: 20150519
  Transmission Date: 20150821
  Serious: No
  Sender: FDA-Public Use
  Company Number: US-ASTRAZENECA-2015SE41818

PATIENT
  Age: 3752 Week
  Sex: Male
  Weight: 61.2 kg

DRUGS (2)
  1. OMEPRAZOLE. [Suspect]
     Active Substance: OMEPRAZOLE
     Indication: GASTROOESOPHAGEAL REFLUX DISEASE
     Route: 048
     Dates: end: 2010
  2. OMEPRAZOLE. [Suspect]
     Active Substance: OMEPRAZOLE
     Indication: GASTROOESOPHAGEAL REFLUX DISEASE
     Route: 048
     Dates: start: 201501

REACTIONS (3)
  - Therapy cessation [Unknown]
  - Gastrooesophageal reflux disease [Unknown]
  - Extra dose administered [Unknown]

NARRATIVE: CASE EVENT DATE: 201412
